FAERS Safety Report 15445016 (Version 1)
Quarter: 2018Q3

REPORT INFORMATION
  Report Type: Spontaneous
  Country: US (occurrence: US)
  Receive Date: 20180928
  Receipt Date: 20180928
  Transmission Date: 20181010
  Serious: No
  Sender: FDA-Public Use
  Company Number: US-AMGEN-USASP2018059608

PATIENT
  Sex: Female

DRUGS (1)
  1. PROLIA [Suspect]
     Active Substance: DENOSUMAB
     Indication: PRODUCT USED FOR UNKNOWN INDICATION
     Dosage: UNK
     Route: 065

REACTIONS (16)
  - Insomnia [Unknown]
  - Arthralgia [Unknown]
  - Back pain [Unknown]
  - Swelling face [Unknown]
  - Feeling abnormal [Unknown]
  - Bladder disorder [Unknown]
  - Headache [Unknown]
  - Abdominal discomfort [Unknown]
  - Diarrhoea [Unknown]
  - Dizziness [Unknown]
  - Fatigue [Unknown]
  - Palpitations [Unknown]
  - Groin pain [Unknown]
  - Memory impairment [Unknown]
  - Influenza like illness [Unknown]
  - Abdominal pain upper [Unknown]
